FAERS Safety Report 5378709-5 (Version None)
Quarter: 2007Q3

REPORT INFORMATION
  Report Type: 
  Country: None (occurrence: None)
  Receive Date: 20070705
  Receipt Date: 20070629
  Transmission Date: 20080115
  Serious: Yes (Hospitalization)
  Sender: FDA-Public Use
  Company Number: A0661454A

PATIENT
  Age: 83 Year
  Sex: Male
  Weight: 82 kg

DRUGS (6)
  1. SERETIDE [Suspect]
     Indication: BRONCHITIS
     Route: 055
  2. BAMIFIX [Concomitant]
  3. INSULIN [Concomitant]
  4. NORVASC [Concomitant]
     Dosage: .5TAB TWICE PER DAY
  5. OMEPRAZOLE [Concomitant]
     Dosage: 20MG IN THE MORNING
  6. ZOLOFT [Concomitant]

REACTIONS (2)
  - BRONCHITIS [None]
  - DRUG INEFFECTIVE [None]
